FAERS Safety Report 8377516-9 (Version None)
Quarter: 2012Q2

REPORT INFORMATION
  Report Type: 
  Country: None (occurrence: None)
  Receive Date: 20120522
  Receipt Date: 20110620
  Transmission Date: 20120825
  Serious: No
  Sender: FDA-Public Use
  Company Number: US-ASTRAZENECA-2011SE37577

PATIENT
  Age: 54 Year
  Sex: Female

DRUGS (4)
  1. OMEPRAZOLE [Suspect]
     Route: 048
  2. NEXIUM [Concomitant]
  3. IBUPROFEN [Concomitant]
  4. SUCRALFATE [Concomitant]

REACTIONS (10)
  - PAIN [None]
  - WEIGHT DECREASED [None]
  - ENDOSCOPY [None]
  - DYSPHONIA [None]
  - STRESS [None]
  - CHEST PAIN [None]
  - COLONOSCOPY [None]
  - HEADACHE [None]
  - DRUG INEFFECTIVE [None]
  - HERNIA [None]
